FAERS Safety Report 20713164 (Version 1)
Quarter: 2022Q2

REPORT INFORMATION
  Report Type: Spontaneous
  Country: US (occurrence: US)
  Receive Date: 20220415
  Receipt Date: 20220415
  Transmission Date: 20220720
  Serious: No
  Sender: FDA-Public Use
  Company Number: US-ALEMBIC PHARMACUETICALS LIMITED-2022SCAL000127

PATIENT

DRUGS (2)
  1. DESVENLAFAXINE SUCCINATE [Suspect]
     Active Substance: DESVENLAFAXINE SUCCINATE
     Indication: Depression
     Dosage: 25 MILLIGRAM, QD BY MOUTH
  2. DESVENLAFAXINE SUCCINATE [Suspect]
     Active Substance: DESVENLAFAXINE SUCCINATE
     Dosage: 25 MILLIGRAM, QOD  BY MOUTH

REACTIONS (4)
  - Condition aggravated [Unknown]
  - Blood pressure abnormal [Unknown]
  - Mood altered [Unknown]
  - Sleep disorder [Unknown]
